FAERS Safety Report 6476684-3 (Version None)
Quarter: 2009Q4

REPORT INFORMATION
  Report Type: 
  Country: None (occurrence: None)
  Receive Date: 20091207
  Receipt Date: 20091124
  Transmission Date: 20100525
  Serious: Yes (Other)
  Sender: FDA-Public Use
  Company Number: US-ROCHE-408536

PATIENT
  Sex: Male
  Weight: 106.6 kg

DRUGS (2)
  1. PEGASYS [Suspect]
     Indication: HEPATITIS C
     Dosage: ROUTE REPORTED AS INJECTION.
     Route: 065
     Dates: start: 20040422, end: 20040428
  2. COPEGUS [Suspect]
     Indication: HEPATITIS C
     Route: 048
     Dates: start: 20040422, end: 20040428

REACTIONS (14)
  - ANXIETY [None]
  - CHEST PAIN [None]
  - CHOLELITHIASIS [None]
  - COUGH [None]
  - DEPRESSION [None]
  - DISORIENTATION [None]
  - FATIGUE [None]
  - HEART RATE INCREASED [None]
  - HOMICIDAL IDEATION [None]
  - MIGRAINE [None]
  - NEPHROLITHIASIS [None]
  - PAIN [None]
  - RHEUMATOID ARTHRITIS [None]
  - VIRAL LOAD INCREASED [None]
